FAERS Safety Report 23939620 (Version 1)
Quarter: 2024Q2

REPORT INFORMATION
  Report Type: Spontaneous
  Country: US (occurrence: US)
  Receive Date: 20240605
  Receipt Date: 20240605
  Transmission Date: 20240716
  Serious: No
  Sender: FDA-Public Use
  Company Number: US-OTSUKA-2022_037561

PATIENT
  Sex: Male

DRUGS (1)
  1. TOLVAPTAN [Suspect]
     Active Substance: TOLVAPTAN
     Indication: Adjuvant therapy
     Dosage: 7 MG, QD
     Route: 048

REACTIONS (3)
  - Wrong dosage formulation [Unknown]
  - Off label use [Unknown]
  - Underdose [Unknown]
